FAERS Safety Report 6970032-8 (Version None)
Quarter: 2010Q3

REPORT INFORMATION
  Report Type: 
  Country: None (occurrence: None)
  Receive Date: 20100902
  Receipt Date: 20100821
  Transmission Date: 20110219
  Serious: Yes (Hospitalization)
  Sender: FDA-Public Use
  Company Number: A-NJ2010-39190

PATIENT
  Age: 76 Year
  Sex: Female

DRUGS (2)
  1. TRACLEER [Suspect]
     Indication: PULMONARY ARTERIAL HYPERTENSION
     Dosage: ORAL
     Route: 048
     Dates: start: 20070327
  2. REVATO (SILDENAFIL CITRATE) [Concomitant]

REACTIONS (4)
  - ADMINISTRATION SITE INFECTION [None]
  - BLOOD PRESSURE DECREASED [None]
  - JOINT DISLOCATION REDUCTION [None]
  - STAPHYLOCOCCAL SEPSIS [None]
